FAERS Safety Report 10544414 (Version 3)
Quarter: 2014Q4

REPORT INFORMATION
  Report Type: Spontaneous
  Country: JP (occurrence: JP)
  Receive Date: 20141027
  Receipt Date: 20141107
  Transmission Date: 20150529
  Serious: Yes (Other)
  Sender: FDA-Public Use
  Company Number: JP-GLAXOSMITHKLINE-JP2014JPN004009

PATIENT
  Age: 55 Year
  Sex: Male

DRUGS (5)
  1. ARZERRA [Suspect]
     Active Substance: OFATUMUMAB
     Dosage: 2000 MG, QD
     Route: 041
     Dates: start: 20141006, end: 20141006
  2. ACETAMINOPHEN. [Concomitant]
     Active Substance: ACETAMINOPHEN
     Dosage: 400 MG, UNK
     Dates: start: 20140929, end: 20140929
  3. ARZERRA [Suspect]
     Active Substance: OFATUMUMAB
     Dosage: 2000 MG, QD
     Route: 041
     Dates: start: 20141014, end: 20141014
  4. PREDNISOLONE. [Suspect]
     Active Substance: PREDNISOLONE
     Dosage: UNK MG, UNK
     Dates: start: 20140929, end: 20140929
  5. ARZERRA [Suspect]
     Active Substance: OFATUMUMAB
     Indication: CHRONIC LYMPHOCYTIC LEUKAEMIA
     Dosage: 300 MG, QD
     Route: 041
     Dates: start: 20140929, end: 20140929

REACTIONS (2)
  - Septic shock [Recovered/Resolved]
  - Urticaria [Recovered/Resolved]

NARRATIVE: CASE EVENT DATE: 20140929
